FAERS Safety Report 11916541 (Version 1)
Quarter: 2016Q1

REPORT INFORMATION
  Report Type: Report from Study
  Country: GB (occurrence: GB)
  Receive Date: 20160114
  Receipt Date: 20160114
  Transmission Date: 20160526
  Serious: Yes (Death)
  Sender: FDA-Public Use
  Company Number: GB-PFIZER INC-2016005199

PATIENT
  Age: 20 Year
  Sex: Male

DRUGS (7)
  1. METHOXPHENIDINE [Suspect]
     Active Substance: METHOXPHENIDINE
     Dosage: UNK
  2. MORPHINE SULFATE. [Suspect]
     Active Substance: MORPHINE SULFATE
     Dosage: UNK
  3. ETIZOLAM [Suspect]
     Active Substance: ETIZOLAM
     Dosage: UNK
  4. ZUCLOPENTHIXOL [Suspect]
     Active Substance: ZUCLOPENTHIXOL
     Dosage: UNK
  5. PREGABALIN. [Suspect]
     Active Substance: PREGABALIN
     Dosage: UNK
  6. ETHYLPHENIDATE [Suspect]
     Active Substance: ETHYLPHENIDATE
  7. FLUOXETINE [Suspect]
     Active Substance: FLUOXETINE HYDROCHLORIDE
     Dosage: UNK

REACTIONS (1)
  - Toxicity to various agents [Fatal]
